FAERS Safety Report 6542758-1 (Version None)
Quarter: 2010Q1

REPORT INFORMATION
  Report Type: 
  Country: None (occurrence: None)
  Receive Date: 20100114
  Receipt Date: 20100105
  Transmission Date: 20100710
  Serious: Yes (Other)
  Sender: FDA-Public Use
  Company Number: CIP10000029

PATIENT
  Age: 54 Year
  Sex: Female

DRUGS (4)
  1. ACTONEL [Suspect]
     Indication: OSTEOPOROSIS
     Dosage: 35 MG ONCE WEEKLY, ORAL
     Route: 048
     Dates: start: 20050101, end: 20080401
  2. CELEBREX [Concomitant]
  3. NEURONTIN [Concomitant]
  4. AMITRIPTYLINE HYDROCHLORIDE [Concomitant]

REACTIONS (7)
  - CLOSTRIDIAL INFECTION [None]
  - EAR PAIN [None]
  - FATIGUE [None]
  - INFECTION [None]
  - OSTEITIS [None]
  - OSTEOMYELITIS [None]
  - PAIN IN JAW [None]
